FAERS Safety Report 7998642-X (Version None)
Quarter: 2011Q4

REPORT INFORMATION
  Report Type: 
  Country: None (occurrence: None)
  Receive Date: 20111221
  Receipt Date: 20111216
  Transmission Date: 20120403
  Serious: Yes (Other)
  Sender: FDA-Public Use
  Company Number: US-US-EMD SERONO, INC.-7102348

PATIENT
  Sex: Female

DRUGS (2)
  1. THYROID MEDICATION [Concomitant]
     Indication: THYROID DISORDER
  2. REBIF [Suspect]
     Indication: PRODUCT USED FOR UNKNOWN INDICATION
     Route: 058
     Dates: start: 20080721

REACTIONS (10)
  - INJECTION SITE PAIN [None]
  - INJECTION SITE MASS [None]
  - URINARY RETENTION [None]
  - BLOOD POTASSIUM DECREASED [None]
  - VISION BLURRED [None]
  - INJECTION SITE ERYTHEMA [None]
  - URINARY TRACT INFECTION [None]
  - BALANCE DISORDER [None]
  - DRY SKIN [None]
  - INFLUENZA LIKE ILLNESS [None]
